FAERS Safety Report 8240516-3 (Version None)
Quarter: 2012Q1

REPORT INFORMATION
  Report Type: 
  Country: None (occurrence: None)
  Receive Date: 20120328
  Receipt Date: 20120322
  Transmission Date: 20120608
  Serious: Yes (Other)
  Sender: FDA-Public Use
  Company Number: US-BAYER-2012-028611

PATIENT
  Age: 61 Year
  Sex: Male

DRUGS (15)
  1. CARBAMAZEPINE [Concomitant]
     Dosage: 200 MG
     Dates: end: 20120314
  2. FENTANYL [Concomitant]
     Dosage: 50 MCG/HR
     Route: 062
     Dates: start: 20120207, end: 20120314
  3. DIOVAN HCT [Concomitant]
     Dosage: 320MG/25MG
     Dates: start: 20110317, end: 20120314
  4. SIMVASTATIN [Concomitant]
     Dosage: 80 MG
     Dates: start: 20110303, end: 20120314
  5. HUMALOG [Concomitant]
     Dosage: 100/ML
     Dates: end: 20120314
  6. CARVEDILOL [Concomitant]
     Dosage: 12.5 MG
     Dates: start: 20110317, end: 20120314
  7. GABAPENTIN [Concomitant]
     Dosage: 600 MG
     Dates: start: 20110307, end: 20120314
  8. PLAVIX [Concomitant]
     Dosage: 75 MG
     Dates: start: 20110307, end: 20120314
  9. GLIMEPIRIDE W/PIOGLITAZONE [Concomitant]
     Dosage: 30MG/4MG
     Dates: start: 20110226, end: 20120314
  10. FENTANYL [Concomitant]
     Dosage: 75MCG/HR
     Route: 062
     Dates: start: 20120220, end: 20120314
  11. FLUOXETINE [Concomitant]
     Dosage: 40 MG
     Dates: start: 20110303, end: 20120314
  12. ACETAMINOPHEN [Concomitant]
     Dosage: 325 MG, PRN
     Dates: end: 20120314
  13. NEXAVAR [Suspect]
     Indication: RENAL CANCER
     Dosage: 400 MG, BID
     Route: 048
     Dates: start: 20120225, end: 20120314
  14. HYDROMORPHONE HCL [Concomitant]
     Dosage: 4 MG
     Dates: start: 20120220, end: 20120314
  15. LANTUS [Concomitant]
     Dosage: 100/ML
     Dates: end: 20120314

REACTIONS (1)
  - RENAL CANCER [None]
